FAERS Safety Report 13801536 (Version 4)
Quarter: 2017Q4

REPORT INFORMATION
  Report Type: Report from Study
  Country: ES (occurrence: ES)
  Receive Date: 20170727
  Receipt Date: 20171028
  Transmission Date: 20180320
  Serious: Yes (Death, Other)
  Sender: FDA-Public Use
  Company Number: ES-AMGEN-ESPNI2017113040

PATIENT
  Age: 22 Year

DRUGS (1)
  1. BLINATUMOMAB [Suspect]
     Active Substance: BLINATUMOMAB
     Indication: B PRECURSOR TYPE ACUTE LEUKAEMIA
     Dosage: UNK
     Route: 065
     Dates: start: 20170206, end: 20170226

REACTIONS (2)
  - Death [Fatal]
  - Fungal infection [Unknown]

NARRATIVE: CASE EVENT DATE: 20170515
